FAERS Safety Report 10098214 (Version 3)
Quarter: 2014Q4

REPORT INFORMATION
  Report Type: Spontaneous
  Country: US (occurrence: US)
  Receive Date: 20140423
  Receipt Date: 20141205
  Transmission Date: 20150528
  Serious: No
  Sender: FDA-Public Use
  Company Number: US-BRISTOL-MYERS SQUIBB COMPANY-20148813

PATIENT
  Age: 71 Year
  Sex: Male
  Weight: 83.9 kg

DRUGS (2)
  1. YERVOY [Suspect]
     Active Substance: IPILIMUMAB
     Indication: MALIGNANT MELANOMA
     Dosage: 3 INFUSIONS
     Route: 042
  2. BABY ASPIRIN [Concomitant]
     Active Substance: ASPIRIN

REACTIONS (3)
  - Pruritus [Unknown]
  - Headache [Unknown]
  - Gout [Unknown]

NARRATIVE: CASE EVENT DATE: 2014
